FAERS Safety Report 9112536 (Version 1)
Quarter: 2013Q1

REPORT INFORMATION
  Report Type: Spontaneous
  Country: US (occurrence: US)
  Receive Date: 20130211
  Receipt Date: 20130211
  Transmission Date: 20140127
  Serious: No
  Sender: FDA-Public Use
  Company Number: US-ASTRAZENECA-2013SE06994

PATIENT
  Age: 46 Year
  Sex: Female
  Weight: 77.1 kg

DRUGS (3)
  1. ZOMIG [Suspect]
     Indication: CLUSTER HEADACHE
     Route: 048
     Dates: start: 2007
  2. ZOMIG [Suspect]
     Indication: CLUSTER HEADACHE
     Route: 048
     Dates: start: 201212, end: 201212
  3. ZOMIG [Suspect]
     Indication: CLUSTER HEADACHE
     Route: 048

REACTIONS (7)
  - Accidental exposure to product [Unknown]
  - Oesophageal discomfort [Unknown]
  - Adenoidal disorder [Unknown]
  - Dysphagia [Unknown]
  - Muscle tightness [Unknown]
  - Intentional drug misuse [Unknown]
  - Off label use [Unknown]
